FAERS Safety Report 4690514-1 (Version None)
Quarter: 2005Q2

REPORT INFORMATION
  Report Type: 
  Country: None (occurrence: None)
  Receive Date: 20050615
  Receipt Date: 20050309
  Transmission Date: 20051028
  Serious: Yes (Hospitalization, Disabling)
  Sender: FDA-Public Use
  Company Number: US-MERCK-0503USA01968

PATIENT
  Age: 44 Year
  Sex: Male
  Weight: 91 kg

DRUGS (5)
  1. VIOXX [Suspect]
     Indication: GOUT
     Route: 048
     Dates: start: 19990101, end: 20040101
  2. VIOXX [Suspect]
     Indication: ARTHRITIS
     Route: 048
     Dates: start: 19990101, end: 20040101
  3. ZOCOR [Concomitant]
     Indication: BLOOD CHOLESTEROL INCREASED
     Route: 048
  4. LOTREL [Concomitant]
     Indication: HYPERTENSION
     Route: 065
  5. PRAVACHOL [Concomitant]
     Indication: BLOOD CHOLESTEROL INCREASED
     Route: 065
     Dates: start: 20010101

REACTIONS (9)
  - ANHEDONIA [None]
  - ANXIETY [None]
  - BLOOD TRIGLYCERIDES INCREASED [None]
  - CHEST PAIN [None]
  - DEPRESSION [None]
  - EMOTIONAL DISTRESS [None]
  - HERNIA [None]
  - MYOCARDIAL INFARCTION [None]
  - PANIC DISORDER [None]
